FAERS Safety Report 22240892 (Version 2)
Quarter: 2023Q2

REPORT INFORMATION
  Report Type: Spontaneous
  Country: US (occurrence: US)
  Receive Date: 20230421
  Receipt Date: 20230509
  Transmission Date: 20230721
  Serious: Yes (Hospitalization)
  Sender: FDA-Public Use
  Company Number: US-SMITH AND NEPHEW, INC-2023SMT00028

PATIENT
  Age: 54 Year
  Sex: Male
  Weight: 79.365 kg

DRUGS (18)
  1. REGRANEX [Suspect]
     Active Substance: BECAPLERMIN
     Indication: Limb injury
     Dosage: TOPICALLY TO OPEN WOUND ON RIGHT FOOT
     Route: 061
  2. MORPHINE SULFATE [Suspect]
     Active Substance: MORPHINE SULFATE
     Indication: Pain
     Dosage: 15 MG, 2X/DAY, ONCE IN THE MORNING AND ONCE IN THE EVENING
  3. BUPROPION [Concomitant]
     Active Substance: BUPROPION
     Dosage: 150 MG, 1X/DAY, EVERY MORNING
  4. FLUOXETINE [Concomitant]
     Active Substance: FLUOXETINE HYDROCHLORIDE
     Dosage: 20 MG, 1X/DAY, EVERY MORNING
  5. ATORVASTATIN [Concomitant]
     Active Substance: ATORVASTATIN
     Dosage: 10 MG, 1X/DAY, EVERY MORNING
  6. LOSARTAN POTASSIUM AND HYDROCHLOROTHIAZIDE [Concomitant]
     Active Substance: HYDROCHLOROTHIAZIDE\LOSARTAN POTASSIUM
     Dosage: 50/12.5 MG, 1X/DAY, EVERY MORNING
  7. AMOXICILLIN AND CLAVULANATE POTASSIUM (14:1) [Concomitant]
     Dosage: 875-125 MG, 2X/DAY
  8. OXYCODONE AND ACETAMINOPHEN [Concomitant]
     Active Substance: ACETAMINOPHEN\OXYCODONE HYDROCHLORIDE
     Dosage: 5-325 MG, UP TO 4X/DAY AS NEEDED
  9. ALBUTEROL SULFATE [Concomitant]
     Active Substance: ALBUTEROL SULFATE
     Dosage: UNK, INHALER AS NEEDED
  10. SYMBICORT [Concomitant]
     Active Substance: BUDESONIDE\FORMOTEROL FUMARATE DIHYDRATE
     Dosage: 2 PUFFS, 1X/DAY
  11. MINERALS\VITAMINS [Concomitant]
     Active Substance: MINERALS\VITAMINS
     Dosage: UNK, 1X/DAY, IN THE MORNING
  12. SUPER B COMPLEX [VITAMIN B COMPLEX] [Concomitant]
     Dosage: UNK, 1X/DAY
  13. FAMOTIDINE [Concomitant]
     Active Substance: FAMOTIDINE
     Dosage: 20 MG, 2X/DAY, MORNING AND EVENING
  14. CELECOXIB [Concomitant]
     Active Substance: CELECOXIB
     Dosage: 1 CAPSULES, 2X/DAY, AS NEEDED
  15. BENADRYL [Concomitant]
     Active Substance: DIPHENHYDRAMINE HYDROCHLORIDE
     Dosage: 25 MG, 1X/DAY, AT NIGHT FOR SLEEP (USES BENADRYL OR MELATONIN)
  16. MELATONIN [Concomitant]
     Active Substance: MELATONIN
     Dosage: 5 MG, 1X/DAY, AT NIGHT FOR SLEEP (USES MELATONIN OR BENADRYL)
  17. OMEPRAZOLE [Concomitant]
     Active Substance: OMEPRAZOLE
     Dosage: 40 MG, 1X/DAY, EVERY MORNING
  18. COMPOUNDED SALVE WITH GABAPENTIN ^SPECIAL K^ [Concomitant]

REACTIONS (5)
  - Infection [Unknown]
  - Renal disorder [Not Recovered/Not Resolved]
  - Hepatic steatosis [Not Recovered/Not Resolved]
  - Sinusitis [Not Recovered/Not Resolved]
  - Pain [Not Recovered/Not Resolved]

NARRATIVE: CASE EVENT DATE: 20230101
